FAERS Safety Report 6486553-0 (Version None)
Quarter: 2009Q4

REPORT INFORMATION
  Report Type: 
  Country: None (occurrence: None)
  Receive Date: 20091209
  Receipt Date: 20091209
  Transmission Date: 20100525
  Serious: Yes (Hospitalization)
  Sender: FDA-Public Use
  Company Number: None

PATIENT
  Age: 84 Year
  Sex: Female
  Weight: 88.6 kg

DRUGS (7)
  1. RAMIPRIL [Suspect]
     Indication: HYPERTENSION
     Dosage: 10MG DAILY PO  CHRONIC
     Route: 048
  2. ASPIRIN [Concomitant]
  3. PLAVIX [Concomitant]
  4. METOPROLOL [Concomitant]
  5. FUROSEMIDE [Concomitant]
  6. LEVOTHYROXINE SODIUM [Concomitant]
  7. CYCLOBENZAPRINE [Concomitant]

REACTIONS (5)
  - ABDOMINAL PAIN [None]
  - ANGIOEDEMA [None]
  - MEDICATION ERROR [None]
  - VAGINAL INFECTION [None]
  - WRONG DRUG ADMINISTERED [None]
